FAERS Safety Report 9406736 (Version 1)
Quarter: 2013Q3

REPORT INFORMATION
  Report Type: Spontaneous
  Country: US (occurrence: US)
  Receive Date: 20130718
  Receipt Date: 20130718
  Transmission Date: 20140515
  Serious: No
  Sender: FDA-Public Use
  Company Number: US-BIOGENIDEC-2013BI064795

PATIENT
  Sex: Female

DRUGS (4)
  1. AVONEX [Suspect]
     Indication: MULTIPLE SCLEROSIS
     Route: 030
     Dates: start: 20110322
  2. LACTULOSE [Concomitant]
  3. IBUPROFEN [Concomitant]
  4. ENDOCET [Concomitant]

REACTIONS (3)
  - Chills [Unknown]
  - Hyperhidrosis [Unknown]
  - Muscular weakness [Unknown]
